FAERS Safety Report 6985503-8 (Version None)
Quarter: 2010Q3

REPORT INFORMATION
  Report Type: 
  Country: None (occurrence: None)
  Receive Date: 20100915
  Receipt Date: 20100909
  Transmission Date: 20110219
  Serious: Yes (Death)
  Sender: FDA-Public Use
  Company Number: B0674196A

PATIENT
  Sex: Male
  Weight: 56 kg

DRUGS (7)
  1. ALKERAN [Suspect]
     Indication: ALLOGENIC BONE MARROW TRANSPLANTATION THERAPY
     Dosage: 60MGM2 PER DAY
     Route: 042
     Dates: start: 20060508, end: 20060510
  2. FLUDARA [Suspect]
     Indication: ALLOGENIC BONE MARROW TRANSPLANTATION THERAPY
     Dosage: 30MGM2 PER DAY
     Route: 042
     Dates: start: 20060504, end: 20060509
  3. GRAN [Concomitant]
     Route: 058
     Dates: start: 20060512, end: 20060524
  4. CYCLOSPORINE [Concomitant]
     Indication: IMMUNOSUPPRESSION
     Dosage: 100MG PER DAY
     Route: 065
     Dates: start: 20060510, end: 20060524
  5. METHOTREXATE [Concomitant]
     Indication: IMMUNOSUPPRESSION
     Dosage: 15MG PER DAY
     Route: 065
     Dates: start: 20060512, end: 20060517
  6. MEROPEN [Concomitant]
     Dosage: .5G PER DAY
     Route: 042
     Dates: start: 20060520, end: 20060523
  7. VANCOMYCIN [Concomitant]
     Dosage: .5G PER DAY
     Route: 042
     Dates: start: 20060520, end: 20060523

REACTIONS (1)
  - SEPSIS [None]
